FAERS Safety Report 24801903 (Version 4)
Quarter: 2025Q1

REPORT INFORMATION
  Report Type: Spontaneous
  Country: TR (occurrence: TR)
  Receive Date: 20250102
  Receipt Date: 20250303
  Transmission Date: 20250409
  Serious: Yes (Other)
  Sender: MERCK KGAA
  Company Number: TR-Merck Healthcare KGaA-2024067684

PATIENT
  Age: 54 Year
  Sex: Female

DRUGS (1)
  1. EUTHYROX [Suspect]
     Active Substance: LEVOTHYROXINE SODIUM
     Indication: Product used for unknown indication

REACTIONS (3)
  - Coagulopathy [Recovered/Resolved]
  - Thrombosis [Recovered/Resolved]
  - Laboratory test abnormal [Unknown]
